FAERS Safety Report 8902668 (Version 1)
Quarter: 2012Q4

REPORT INFORMATION
  Report Type: 
  Country: PL (occurrence: PL)
  Receive Date: 20121112
  Receipt Date: 20121112
  Transmission Date: 20130627
  Serious: Yes (Other)
  Sender: FDA-Public Use
  Company Number: PHHY2012PL102827

PATIENT
  Age: 5 Year

DRUGS (3)
  1. TACROLIMUS [Suspect]
  2. MYCOPHENOLATE MOFETIL [Suspect]
     Indication: LIVER TRANSPLANT
  3. ENCORTON [Suspect]

REACTIONS (2)
  - Microangiopathic haemolytic anaemia [Recovering/Resolving]
  - Hepatic steatosis [Recovering/Resolving]
